FAERS Safety Report 8155179-5 (Version None)
Quarter: 2012Q1

REPORT INFORMATION
  Report Type: 
  Country: None (occurrence: None)
  Receive Date: 20120221
  Receipt Date: 20120215
  Transmission Date: 20120608
  Serious: Yes (Hospitalization, Other)
  Sender: FDA-Public Use
  Company Number: US-ASTRAZENECA-2012SE10747

PATIENT
  Age: 41 Year
  Sex: Female

DRUGS (3)
  1. SEROQUEL XR [Suspect]
     Route: 048
  2. XANAX [Concomitant]
  3. VALIUM [Concomitant]

REACTIONS (5)
  - BLOOD PRESSURE DECREASED [None]
  - MENINGITIS [None]
  - DRUG DOSE OMISSION [None]
  - DIZZINESS [None]
  - CYSTITIS [None]
